FAERS Safety Report 8811752 (Version 2)
Quarter: 2012Q4

REPORT INFORMATION
  Report Type: 
  Country: US (occurrence: US)
  Receive Date: 20120927
  Receipt Date: 20121026
  Transmission Date: 20130627
  Serious: Yes (Other)
  Sender: FDA-Public Use
  Company Number: US-ASTRAZENECA-2012SE72903

PATIENT
  Age: 64 Year
  Sex: Female

DRUGS (12)
  1. BRILINTA [Suspect]
     Indication: MYOCARDIAL INFARCTION
     Route: 048
     Dates: start: 201205
  2. METOPROLOL [Suspect]
     Indication: HYPERTENSION
     Route: 048
  3. METFORMIN [Concomitant]
     Indication: DIABETES MELLITUS
     Route: 048
     Dates: start: 2009
  4. LOSARTAN [Concomitant]
     Indication: HYPERTENSION
     Route: 048
  5. ASA [Concomitant]
     Route: 048
  6. RANITIDINE [Concomitant]
     Indication: REFLUX LARYNGITIS
     Route: 048
     Dates: start: 2012
  7. COQ10 [Concomitant]
     Dosage: ONCE DAILY
     Route: 048
  8. FISH OIL [Concomitant]
     Dosage: ONCE DAILY
     Route: 048
  9. VIT D [Concomitant]
     Dosage: ONCE DAILY
     Route: 048
  10. LETROZOLE [Concomitant]
     Indication: NEOPLASM MALIGNANT
     Route: 048
     Dates: start: 201208
  11. ZETIA [Concomitant]
     Indication: BLOOD CHOLESTEROL ABNORMAL
     Route: 048
  12. LEVOTHYROXINE [Concomitant]
     Indication: THYROID DISORDER
     Route: 048
     Dates: start: 201210

REACTIONS (3)
  - Breast cancer female [Unknown]
  - Malignant neoplasm of unknown primary site [Unknown]
  - Thyroid function test abnormal [Unknown]
